FAERS Safety Report 4370629-8 (Version None)
Quarter: 2004Q2

REPORT INFORMATION
  Report Type: 
  Country: None (occurrence: None)
  Receive Date: 20040525
  Receipt Date: 20040511
  Transmission Date: 20050107
  Serious: Yes (Death)
  Sender: FDA-Public Use
  Company Number: BIVUS040040

PATIENT
  Age: 84 Year
  Sex: Male

DRUGS (4)
  1. ANGIOMAX [Suspect]
     Indication: ANTICOAGULANT THERAPY
     Dosage: SEE IMAGE
     Dates: start: 20040511, end: 20040511
  2. ANGIOMAX [Suspect]
     Indication: ANTICOAGULANT THERAPY
     Dosage: SEE IMAGE
     Dates: start: 20040511, end: 20040511
  3. INTEGRILIN [Concomitant]
  4. PHENYLEPHRINE (PHENYLEPHRINE) [Concomitant]

REACTIONS (3)
  - ACUTE MYOCARDIAL INFARCTION [None]
  - BLOOD PRESSURE SYSTOLIC DECREASED [None]
  - VENTRICULAR FIBRILLATION [None]
